FAERS Safety Report 23352442 (Version 1)
Quarter: 2023Q4

REPORT INFORMATION
  Report Type: Report from Study
  Country: CA (occurrence: CA)
  Receive Date: 20231229
  Receipt Date: 20231229
  Transmission Date: 20240110
  Serious: Yes (Other)
  Sender: FDA-Public Use
  Company Number: CA-ABBVIE-5562876

PATIENT
  Sex: Female

DRUGS (2)
  1. SKYRIZI [Suspect]
     Active Substance: RISANKIZUMAB-RZAA
     Indication: Crohn^s disease
     Dosage: FREQUENCY TEXT: AT WEEK 0,?LAST ADMIN DATE: 2023
     Route: 042
     Dates: start: 20231121
  2. SKYRIZI [Suspect]
     Active Substance: RISANKIZUMAB-RZAA
     Indication: Crohn^s disease
     Dosage: FREQUENCY TEXT: AT WEEK 4
     Route: 042
     Dates: start: 20231219

REACTIONS (2)
  - Intestinal operation [Unknown]
  - Investigation abnormal [Recovering/Resolving]

NARRATIVE: CASE EVENT DATE: 20230101
